FAERS Safety Report 8241334-2 (Version None)
Quarter: 2012Q1

REPORT INFORMATION
  Report Type: 
  Country: None (occurrence: None)
  Receive Date: 20120328
  Receipt Date: 20120322
  Transmission Date: 20120608
  Serious: Yes (Hospitalization)
  Sender: FDA-Public Use
  Company Number: NL-AMGEN-NLDSP2012019209

PATIENT
  Age: 45 Year
  Sex: Female
  Weight: 68 kg

DRUGS (9)
  1. MEPERIDINE HCL [Concomitant]
     Indication: PAIN
     Dosage: 50 MG, UNK
  2. FILGRASTIM [Suspect]
     Indication: B-CELL LYMPHOMA
     Dosage: 2 MUG, UNK
     Route: 058
     Dates: start: 20120107
  3. RITUXIMAB [Suspect]
     Indication: B-CELL LYMPHOMA
     Dosage: 653 MG, UNK
     Route: 042
     Dates: start: 20120106
  4. COTRIM [Concomitant]
     Dosage: 400 MG, UNK
     Route: 048
  5. ACETAMINOPHEN [Concomitant]
     Indication: PAIN
     Dosage: 300 MG, UNK
  6. VINCRISTINE [Suspect]
     Indication: B-CELL LYMPHOMA
     Dosage: 2 MG, UNK
     Route: 042
     Dates: start: 20120106
  7. PREDNISONE TAB [Suspect]
     Indication: B-CELL LYMPHOMA
     Dosage: 100 MG, UNK
     Route: 048
     Dates: start: 20120106
  8. CYCLOPHOSPHAMIDE [Suspect]
     Indication: B-CELL LYMPHOMA
     Dosage: 1358 MG, UNK
     Route: 042
     Dates: start: 20120106
  9. DOXORUBICIN HCL [Suspect]
     Indication: B-CELL LYMPHOMA
     Dosage: 91 MG, UNK
     Route: 042
     Dates: start: 20120106

REACTIONS (1)
  - INTESTINAL FISTULA [None]
